FAERS Safety Report 5283542-9 (Version None)
Quarter: 2007Q1

REPORT INFORMATION
  Report Type: 
  Country: None (occurrence: None)
  Receive Date: 20070329
  Receipt Date: 20070329
  Transmission Date: 20070707
  Serious: Yes (Hospitalization)
  Sender: FDA-Public Use
  Company Number: None

PATIENT
  Age: 50 Year
  Sex: Female
  Weight: 73.0291 kg

DRUGS (15)
  1. WARFARIN SODIUM [Suspect]
     Indication: CEREBROVASCULAR ACCIDENT
     Dosage: 9 MG DAILY PO
     Route: 048
     Dates: start: 20020901, end: 20070327
  2. WARFARIN SODIUM [Suspect]
     Indication: MITRAL VALVE REPLACEMENT
     Dosage: 9 MG DAILY PO
     Route: 048
     Dates: start: 20020901, end: 20070327
  3. CIPROFLOXACIN [Suspect]
     Indication: URINARY TRACT INFECTION
     Dosage: 500 MG BID PO
     Route: 048
     Dates: start: 20070224, end: 20070226
  4. ASPIRIN [Concomitant]
  5. ATENOLOL [Concomitant]
  6. CYCLOBENZAPRINE HCL [Concomitant]
  7. DIVALPROEX SODIUM [Concomitant]
  8. SENOKOT [Concomitant]
  9. VYTORIN [Concomitant]
  10. GABAPENTIN [Concomitant]
  11. HYDROXYZINE [Concomitant]
  12. LISINOPRIL [Concomitant]
  13. OXYBUTYNIN CHLORIDE [Concomitant]
  14. TOPIRIMATE [Concomitant]
  15. POTASSIUM ACETATE [Concomitant]

REACTIONS (5)
  - COORDINATION ABNORMAL [None]
  - DRUG INTERACTION [None]
  - DRUG TOXICITY [None]
  - DYSARTHRIA [None]
  - FALL [None]
